FAERS Safety Report 23908391 (Version 2)
Quarter: 2024Q2

REPORT INFORMATION
  Report Type: Spontaneous
  Country: ES (occurrence: UY)
  Receive Date: 20240528
  Receipt Date: 20240531
  Transmission Date: 20240715
  Serious: Yes (Other)
  Sender: FDA-Public Use
  Company Number: ES-BAYER-2024A074466

PATIENT
  Age: 23 Year
  Sex: Female

DRUGS (2)
  1. BETAFERON [Suspect]
     Active Substance: INTERFERON BETA-1B
     Indication: Multiple sclerosis
     Dosage: UNK UNK, QOD
     Route: 058
     Dates: start: 20080201
  2. KETOPROFENO RATIOPHARM [Concomitant]
     Dosage: UNK
     Dates: start: 20240520

REACTIONS (3)
  - Puncture site pain [Recovering/Resolving]
  - Pain in extremity [None]
  - Arthralgia [None]

NARRATIVE: CASE EVENT DATE: 20240514
